FAERS Safety Report 20589202 (Version 1)
Quarter: 2022Q1

REPORT INFORMATION
  Report Type: Spontaneous
  Country: CA (occurrence: CA)
  Receive Date: 20220314
  Receipt Date: 20220314
  Transmission Date: 20220423
  Serious: Yes (Life-Threatening, Hospitalization)
  Sender: FDA-Public Use
  Company Number: CA-TEVA-2022-CA-2015390

PATIENT
  Age: 16 Year
  Sex: Female

DRUGS (3)
  1. PRAZOSIN [Suspect]
     Active Substance: PRAZOSIN
     Indication: Completed suicide
     Route: 048
  2. ACETAMINOPHEN [Suspect]
     Active Substance: ACETAMINOPHEN
     Indication: Completed suicide
     Route: 048
  3. NAPROXEN [Concomitant]
     Active Substance: NAPROXEN

REACTIONS (4)
  - Loss of consciousness [Recovering/Resolving]
  - Metabolic acidosis [Recovering/Resolving]
  - Vomiting [Recovering/Resolving]
  - Intentional overdose [Recovering/Resolving]
